FAERS Safety Report 8335169-X (Version None)
Quarter: 2012Q2

REPORT INFORMATION
  Report Type: 
  Country: None (occurrence: None)
  Receive Date: 20120503
  Receipt Date: 20120420
  Transmission Date: 20120825
  Serious: Yes (Death, Hospitalization, Other)
  Sender: FDA-Public Use
  Company Number: US-MYLANLABS-2009AC000175

PATIENT
  Age: 57 Year
  Sex: Male
  Weight: 129.73 kg

DRUGS (17)
  1. DIGOXIN [Suspect]
     Indication: ATRIAL FIBRILLATION
     Route: 048
     Dates: start: 20060816, end: 20061205
  2. HEPARIN [Concomitant]
  3. METOPROLOL TARTRATE [Concomitant]
  4. PAXIL [Concomitant]
  5. FUROSEMIDE [Concomitant]
  6. PAROXETINE [Concomitant]
  7. HYDRALAZINE HCL [Concomitant]
  8. CLOPIDOGREL [Concomitant]
  9. HUMULIN INSULIN [Concomitant]
     Dosage: 10 + 30
  10. ATENOLOL [Concomitant]
  11. COUMADIN [Concomitant]
  12. AMIODARONE HCL [Concomitant]
  13. ZOSYN [Concomitant]
  14. ISORDIL [Concomitant]
  15. CLONIDINE [Concomitant]
  16. LISINOPRIL [Concomitant]
  17. LIPITOR [Concomitant]

REACTIONS (15)
  - PULMONARY EMBOLISM [None]
  - OSTEOMYELITIS [None]
  - ILL-DEFINED DISORDER [None]
  - DIABETES MELLITUS [None]
  - FOOT AMPUTATION [None]
  - OEDEMA [None]
  - HYPERBARIC OXYGEN THERAPY [None]
  - PERIPHERAL ARTERIAL OCCLUSIVE DISEASE [None]
  - GANGRENE [None]
  - PAIN [None]
  - CORONARY ARTERY DISEASE [None]
  - HYPERTENSION [None]
  - INJURY [None]
  - EMOTIONAL DISTRESS [None]
  - DEATH [None]
